FAERS Safety Report 6094682-9 (Version None)
Quarter: 2009Q1

REPORT INFORMATION
  Report Type: 
  Country: None (occurrence: None)
  Receive Date: 20090226
  Receipt Date: 20090217
  Transmission Date: 20090719
  Serious: Yes (Other)
  Sender: FDA-Public Use
  Company Number: US-MERCK-0810USA03107

PATIENT
  Age: 60 Year
  Sex: Female

DRUGS (3)
  1. ISENTRESS [Suspect]
     Indication: HIV INFECTION
     Route: 065
  2. INTELENCE [Suspect]
     Indication: HIV INFECTION
     Route: 048
  3. MARAVIROC [Suspect]
     Indication: HIV INFECTION
     Route: 065

REACTIONS (1)
  - MYELODYSPLASTIC SYNDROME [None]
